FAERS Safety Report 10191292 (Version 1)
Quarter: 2014Q2

REPORT INFORMATION
  Report Type: Spontaneous
  Country: US (occurrence: None)
  Receive Date: 20140522
  Receipt Date: 20140522
  Transmission Date: 20141212
  Serious: No
  Sender: FDA-Public Use
  Company Number: None

PATIENT
  Age: 19 Year
  Sex: Male

DRUGS (1)
  1. HALOPERIDOL 5MG [Suspect]
     Indication: MENTAL DISORDER
     Dosage: UNKNOWN, 5MG, QD, ORAL
     Route: 048

REACTIONS (2)
  - Musculoskeletal stiffness [None]
  - Muscle twitching [None]
